FAERS Safety Report 16510275 (Version 10)
Quarter: 2020Q4

REPORT INFORMATION
  Report Type: Report from Study
  Country: US (occurrence: US)
  Receive Date: 20190701
  Receipt Date: 20201118
  Transmission Date: 20210113
  Serious: Yes (Death, Hospitalization)
  Sender: FDA-Public Use
  Company Number: US-PFIZER INC-2019235169

PATIENT
  Age: 56 Year
  Sex: Male
  Weight: 52 kg

DRUGS (19)
  1. TALAZOPARIB. [Suspect]
     Active Substance: TALAZOPARIB
     Indication: PROSTATE CANCER METASTATIC
     Dosage: 1 MG, ONCE A DAY
     Route: 048
     Dates: start: 20190429, end: 20190528
  2. CALCIUM CARBONATE W/VITAMIN D [CALCIUM CARBONATE;ERGOCALCIFEROL] [Concomitant]
     Indication: SUPPLEMENTATION THERAPY
     Dosage: [CALCIUM CARBONATE 500 MG]/[ERGOCALCIFEROL 200 MG]
     Route: 048
  3. MAGNESIUM OXIDE. [Concomitant]
     Active Substance: MAGNESIUM OXIDE
     Indication: HYPOMAGNESAEMIA
     Dosage: UNK
     Route: 048
     Dates: start: 20190322
  4. OXYCODONE [Concomitant]
     Active Substance: OXYCODONE
     Indication: BONE PAIN
     Dosage: UNK
     Route: 048
     Dates: start: 20160812
  5. MORPHINE [Concomitant]
     Active Substance: MORPHINE
     Indication: BONE PAIN
     Dosage: UNK
     Route: 048
     Dates: start: 20190503
  6. FLUDROCORTISONE [Concomitant]
     Active Substance: FLUDROCORTISONE
     Indication: HYPOTENSION
     Dosage: 1 TABLET, 1X/DAY
     Route: 048
     Dates: start: 20190522
  7. PREDNISONE. [Suspect]
     Active Substance: PREDNISONE
     Dosage: 40 MG, 1 TABLET, 2X/DAY
     Route: 048
     Dates: start: 20190520, end: 20190604
  8. SENNA [SENNOSIDE A+B] [Concomitant]
     Active Substance: SENNOSIDES A AND B
     Indication: CONSTIPATION
     Dosage: UNK
     Route: 048
     Dates: start: 20190415
  9. BACTRIM [Concomitant]
     Active Substance: SULFAMETHOXAZOLE\TRIMETHOPRIM
     Indication: INFECTION PROPHYLAXIS
     Dosage: UNK
     Route: 048
     Dates: start: 20190522
  10. AVELUMAB [Suspect]
     Active Substance: AVELUMAB
     Indication: PROSTATE CANCER METASTATIC
     Dosage: 800 MG, DAY 1 AND DAY 15 OF EACH 28 DAY CYCLE
     Route: 041
     Dates: start: 20190429, end: 20190515
  11. HYDROCORTISONE. [Concomitant]
     Active Substance: HYDROCORTISONE
     Indication: HYPOTENSION
     Dosage: Q6HRS
     Route: 042
     Dates: start: 20190515, end: 20190517
  12. PREDNISONE. [Suspect]
     Active Substance: PREDNISONE
     Indication: STEROID THERAPY
     Dosage: 1 TABLET, 1X/DAY
     Route: 048
     Dates: start: 20190517, end: 20190520
  13. LUPRON [Concomitant]
     Active Substance: LEUPROLIDE ACETATE
     Indication: ANDROGEN THERAPY
     Dosage: UNK
     Route: 030
     Dates: start: 20160812
  14. ONDANSETRON [Concomitant]
     Active Substance: ONDANSETRON
     Indication: NAUSEA
     Dosage: UNK
     Route: 030
     Dates: start: 20190515, end: 20190515
  15. HYDROCORTISONE. [Concomitant]
     Active Substance: HYDROCORTISONE
     Indication: HEPATIC ENZYME INCREASED
  16. ZOFRAN [Concomitant]
     Active Substance: ONDANSETRON HYDROCHLORIDE
     Indication: PROPHYLAXIS OF NAUSEA AND VOMITING
     Dosage: UNK
     Route: 048
     Dates: start: 20160812
  17. PREDNISONE. [Suspect]
     Active Substance: PREDNISONE
     Indication: PREMEDICATION
     Dosage: 1 TABLET, 1X/DAY
     Route: 048
     Dates: start: 20170615, end: 20190517
  18. PREVACID [Concomitant]
     Active Substance: LANSOPRAZOLE
     Indication: PROPHYLAXIS AGAINST GASTROINTESTINAL ULCER
     Dosage: UNK
     Route: 048
     Dates: start: 20181221
  19. FLUDROCORTISONE [Concomitant]
     Active Substance: FLUDROCORTISONE
     Indication: SECONDARY ADRENOCORTICAL INSUFFICIENCY

REACTIONS (3)
  - Neoplasm progression [Fatal]
  - Septic shock [Recovered/Resolved]
  - Autoimmune hepatitis [Recovered/Resolved]

NARRATIVE: CASE EVENT DATE: 20190515
